FAERS Safety Report 26035974 (Version 1)
Quarter: 2025Q4

REPORT INFORMATION
  Report Type: Spontaneous
  Country: CN (occurrence: CN)
  Receive Date: 20251112
  Receipt Date: 20251112
  Transmission Date: 20260117
  Serious: Yes (Life-Threatening)
  Sender: PFIZER
  Company Number: CN-PFIZER INC-PV202500131510

PATIENT
  Age: 69 Year
  Sex: Female
  Weight: 58.5 kg

DRUGS (4)
  1. PACLITAXEL [Suspect]
     Active Substance: PACLITAXEL
     Indication: Ovarian cancer
     Dosage: 270 MG, 1X/DAY
     Route: 041
     Dates: start: 20250925, end: 20250925
  2. PACLITAXEL [Suspect]
     Active Substance: PACLITAXEL
     Dosage: 270 MG, 1X/DAY
     Route: 041
     Dates: start: 20251016, end: 20251016
  3. PARAPLATIN [Suspect]
     Active Substance: CARBOPLATIN
     Indication: Ovarian cancer
     Dosage: 485 MG, 1X/DAY
     Route: 041
     Dates: start: 20250925, end: 20250925
  4. PARAPLATIN [Suspect]
     Active Substance: CARBOPLATIN
     Dosage: 485 MG, 1X/DAY
     Route: 041
     Dates: start: 20251016, end: 20251016

REACTIONS (1)
  - Myelosuppression [Recovered/Resolved]

NARRATIVE: CASE EVENT DATE: 20251006
